FAERS Safety Report 8201550-2 (Version None)
Quarter: 2012Q1

REPORT INFORMATION
  Report Type: 
  Country: None (occurrence: None)
  Receive Date: 20120312
  Receipt Date: 20120306
  Transmission Date: 20120608
  Serious: Yes (Other)
  Sender: FDA-Public Use
  Company Number: GR-GLAXOSMITHKLINE-B0787499A

PATIENT
  Age: 55 Year
  Sex: Male

DRUGS (1)
  1. DUTASTERIDE/TAMSULOSIN HYDROCHLORIDE [Suspect]
     Indication: PROSTATIC DISORDER
     Route: 065

REACTIONS (2)
  - SYNCOPE [None]
  - ANGINA PECTORIS [None]
